FAERS Safety Report 19208463 (Version 2)
Quarter: 2021Q2

REPORT INFORMATION
  Report Type: Spontaneous
  Country: US (occurrence: US)
  Receive Date: 20210503
  Receipt Date: 20210604
  Transmission Date: 20210717
  Serious: Yes (Other)
  Sender: FDA-Public Use
  Company Number: US-BAYER-2021-128398

PATIENT
  Age: 47 Year
  Sex: Female

DRUGS (3)
  1. MIRENA [Suspect]
     Active Substance: LEVONORGESTREL
     Indication: ENDOMETRIOSIS
  2. ASPIRIN 81 [Concomitant]
     Active Substance: ASPIRIN
     Dates: start: 202102
  3. MIRENA [Suspect]
     Active Substance: LEVONORGESTREL
     Indication: ADENOMYOSIS
     Dosage: 20 ?G PER DAY CONTINUOUSLY
     Route: 015
     Dates: start: 20200304, end: 20201020

REACTIONS (18)
  - Adnexa uteri pain [Recovered/Resolved]
  - Weight increased [Not Recovered/Not Resolved]
  - Neuralgia [Recovering/Resolving]
  - Off label use of device [None]
  - Arthralgia [Recovering/Resolving]
  - Palpitations [Recovered/Resolved]
  - Back pain [Recovering/Resolving]
  - Pain [Recovered/Resolved]
  - Migraine [Recovering/Resolving]
  - Visual impairment [Recovered/Resolved]
  - Amenorrhoea [Not Recovered/Not Resolved]
  - Blood oestrogen increased [Not Recovered/Not Resolved]
  - Feeling abnormal [Recovered/Resolved with Sequelae]
  - Abnormal uterine bleeding [Recovered/Resolved]
  - Hypertension [Recovering/Resolving]
  - Thrombosis [Recovering/Resolving]
  - Uterine pain [Recovered/Resolved]
  - Progesterone abnormal [Not Recovered/Not Resolved]

NARRATIVE: CASE EVENT DATE: 202003
